FAERS Safety Report 19452793 (Version 2)
Quarter: 2022Q2

REPORT INFORMATION
  Report Type: Spontaneous
  Country: CA (occurrence: CA)
  Receive Date: 20210623
  Receipt Date: 20220405
  Transmission Date: 20220721
  Serious: Yes (Other)
  Sender: FDA-Public Use
  Company Number: CA-SA-2021SA200861

PATIENT
  Age: 41 Year
  Sex: Male

DRUGS (18)
  1. ALEMTUZUMAB [Suspect]
     Active Substance: ALEMTUZUMAB
     Indication: Relapsing-remitting multiple sclerosis
     Dosage: 12 MG, QD FOR 5 DAYS
     Route: 041
  2. ALEMTUZUMAB [Suspect]
     Active Substance: ALEMTUZUMAB
  3. METHYLPREDNISOLONE SODIUM SUCCINATE [Suspect]
     Active Substance: METHYLPREDNISOLONE SODIUM SUCCINATE
     Indication: Product used for unknown indication
     Dosage: 1 G
     Route: 042
  4. METHYLPREDNISOLONE SODIUM SUCCINATE [Suspect]
     Active Substance: METHYLPREDNISOLONE SODIUM SUCCINATE
  5. ACETAMINOPHEN [Concomitant]
     Active Substance: ACETAMINOPHEN
     Indication: Premedication
     Dosage: 1 G
     Route: 048
  6. ACETAMINOPHEN [Concomitant]
     Active Substance: ACETAMINOPHEN
  7. ACYCLOVIR [Concomitant]
     Active Substance: ACYCLOVIR
     Indication: Premedication
     Dosage: 220 MG
     Route: 048
  8. ATIVAN [Concomitant]
     Active Substance: LORAZEPAM
     Dosage: UNK
     Route: 065
  9. ATIVAN [Concomitant]
     Active Substance: LORAZEPAM
  10. BACLOFEN [Concomitant]
     Active Substance: BACLOFEN
     Dosage: UNK
     Route: 065
  11. BACLOFEN [Concomitant]
     Active Substance: BACLOFEN
  12. DIPHENHYDRAMINE [Concomitant]
     Active Substance: DIPHENHYDRAMINE
     Indication: Premedication
     Dosage: 50 MG FOR 5 DAYS
     Route: 048
  13. DIPHENHYDRAMINE [Concomitant]
     Active Substance: DIPHENHYDRAMINE
  14. METHYLPREDNISOLONE SODIUM SUCCINATE [Concomitant]
     Active Substance: METHYLPREDNISOLONE SODIUM SUCCINATE
     Indication: Premedication
     Dosage: 1 G FOR 3 DAYS
     Route: 042
  15. NEURONTIN [Concomitant]
     Active Substance: GABAPENTIN
     Dosage: UNK
     Route: 065
  16. NEURONTIN [Concomitant]
     Active Substance: GABAPENTIN
  17. RANITIDINE [Concomitant]
     Active Substance: RANITIDINE
     Indication: Premedication
     Dosage: 150 MG FOR 5 DAYS
     Route: 048
  18. VITAMIN D NOS [Concomitant]
     Active Substance: VITAMIN D NOS
     Dosage: UNK
     Route: 065

REACTIONS (36)
  - Blood pressure decreased [Not Recovered/Not Resolved]
  - Bilirubin urine present [Not Recovered/Not Resolved]
  - Body temperature increased [Not Recovered/Not Resolved]
  - Bradycardia [Not Recovered/Not Resolved]
  - Chromaturia [Not Recovered/Not Resolved]
  - Crystal urine present [Not Recovered/Not Resolved]
  - Dysgeusia [Not Recovered/Not Resolved]
  - Haematocrit increased [Not Recovered/Not Resolved]
  - Hypotension [Not Recovered/Not Resolved]
  - Immature granulocyte count increased [Not Recovered/Not Resolved]
  - Laboratory test abnormal [Not Recovered/Not Resolved]
  - Mean cell haemoglobin concentration decreased [Not Recovered/Not Resolved]
  - Mean cell volume increased [Not Recovered/Not Resolved]
  - Monocyte percentage increased [Not Recovered/Not Resolved]
  - Nitrite urine present [Not Recovered/Not Resolved]
  - Red blood cell analysis [Not Recovered/Not Resolved]
  - Semenuria [Not Recovered/Not Resolved]
  - Urinary casts [Not Recovered/Not Resolved]
  - Urinary sediment present [Not Recovered/Not Resolved]
  - Urine abnormality [Not Recovered/Not Resolved]
  - Urine analysis abnormal [Not Recovered/Not Resolved]
  - Urobilinogen urine [Not Recovered/Not Resolved]
  - White blood cells urine [Not Recovered/Not Resolved]
  - Fatigue [Not Recovered/Not Resolved]
  - Urinary tract infection [Not Recovered/Not Resolved]
  - Pruritus [Not Recovered/Not Resolved]
  - Initial insomnia [Not Recovered/Not Resolved]
  - Lymphocyte count decreased [Not Recovered/Not Resolved]
  - Blood thyroid stimulating hormone increased [Not Recovered/Not Resolved]
  - Platelet count decreased [Not Recovered/Not Resolved]
  - Erythema [Not Recovered/Not Resolved]
  - Red blood cells urine positive [Not Recovered/Not Resolved]
  - Lymphocyte percentage decreased [Not Recovered/Not Resolved]
  - Pruritus [Not Recovered/Not Resolved]
  - Protein urine [Not Recovered/Not Resolved]
  - Bacterial test positive [Not Recovered/Not Resolved]
